FAERS Safety Report 5278423-0 (Version None)
Quarter: 2007Q1

REPORT INFORMATION
  Report Type: 
  Country: None (occurrence: None)
  Receive Date: 20070322
  Receipt Date: 20070220
  Transmission Date: 20070707
  Serious: Yes (Hospitalization)
  Sender: FDA-Public Use
  Company Number: 237107

PATIENT
  Age: 59 Year
  Sex: Female
  Weight: 59.4 kg

DRUGS (10)
  1. RITUXAN [Suspect]
     Indication: RHEUMATOID ARTHRITIS
     Dates: start: 20060728
  2. PREMPRO [Concomitant]
  3. OXYCONTIN [Concomitant]
  4. FOLIC ACID [Concomitant]
  5. OXYCODONE HCL [Concomitant]
  6. WELLBUTRIN [Concomitant]
  7. EFFEXOR [Concomitant]
  8. CYMBALTA [Concomitant]
  9. NEURONTIN [Concomitant]
  10. DYAZIDE [Concomitant]

REACTIONS (1)
  - AIR-BORNE TRANSMISSION [None]
